FAERS Safety Report 9324631 (Version 1)
Quarter: 2013Q2

REPORT INFORMATION
  Report Type: Spontaneous
  Country: GB (occurrence: GB)
  Receive Date: 20130603
  Receipt Date: 20130603
  Transmission Date: 20140414
  Serious: Yes (Hospitalization)
  Sender: FDA-Public Use
  Company Number: GB-LUNDBECK-DKLU1091235

PATIENT
  Age: 3 Year
  Sex: Male
  Weight: 16 kg

DRUGS (12)
  1. COSMEGEN [Suspect]
     Indication: NEOPLASM MALIGNANT
     Route: 050
     Dates: start: 20130504
  2. VINCRISTINE [Suspect]
     Indication: NEOPLASM MALIGNANT
     Route: 050
     Dates: start: 20130504
  3. IFOSFAMIDE [Suspect]
     Indication: NEOPLASM MALIGNANT
     Route: 050
     Dates: start: 20130504
  4. DOXORUBICIN [Suspect]
     Indication: NEOPLASM MALIGNANT
     Route: 050
     Dates: start: 20130504
  5. ONDANSETRON [Concomitant]
     Indication: PRODUCT USED FOR UNKNOWN INDICATION
     Dates: start: 20130504
  6. DEXAMETHASONE [Concomitant]
     Indication: PRODUCT USED FOR UNKNOWN INDICATION
     Dates: start: 20130504, end: 20130505
  7. METOCLOPRAMIDE [Concomitant]
     Indication: PRODUCT USED FOR UNKNOWN INDICATION
     Dates: start: 20130504
  8. PANTOPRAZOLE [Concomitant]
     Indication: PRODUCT USED FOR UNKNOWN INDICATION
     Dates: start: 20130505
  9. LEVOMEPROMAZINE [Concomitant]
     Indication: PRODUCT USED FOR UNKNOWN INDICATION
     Dates: start: 20130504
  10. PARACETAMOL [Concomitant]
     Indication: PRODUCT USED FOR UNKNOWN INDICATION
     Dates: start: 20130430
  11. PARACETAMOL [Concomitant]
     Dates: start: 20130506
  12. TAZOCIN [Concomitant]
     Indication: PRODUCT USED FOR UNKNOWN INDICATION
     Dates: start: 20130513

REACTIONS (3)
  - Pleural effusion [Unknown]
  - Hypophagia [Unknown]
  - Febrile neutropenia [Unknown]
